FAERS Safety Report 9207614 (Version 2)
Quarter: 2013Q2

REPORT INFORMATION
  Report Type: Spontaneous
  Country: CO (occurrence: CO)
  Receive Date: 20130403
  Receipt Date: 20130412
  Transmission Date: 20140414
  Serious: Yes (Hospitalization)
  Sender: FDA-Public Use
  Company Number: CO-AMGEN-COLCT2010008520

PATIENT
  Age: 44 Year
  Sex: Female

DRUGS (1)
  1. ENBREL [Suspect]
     Indication: PSORIASIS
     Dosage: 50 MG, WEEKLY
     Route: 058
     Dates: start: 200908, end: 2011

REACTIONS (6)
  - Weight increased [Recovering/Resolving]
  - Immune system disorder [Recovered/Resolved]
  - Herpes zoster [Recovered/Resolved]
  - Cellulitis [Recovered/Resolved]
  - Infection [Recovering/Resolving]
  - Drug ineffective [Unknown]
